FAERS Safety Report 9078715 (Version 1)
Quarter: 2013Q1

REPORT INFORMATION
  Report Type: Report from Study
  Country: US (occurrence: US)
  Receive Date: 20130130
  Receipt Date: 20130130
  Transmission Date: 20140127
  Serious: No
  Sender: FDA-Public Use
  Company Number: US-ABBOTT-12P-163-0956792-00

PATIENT
  Age: 48 Year
  Sex: Male

DRUGS (4)
  1. HUMIRA 40 MG/ 0.8 ML PRE-FILLED SYRINGE [Suspect]
     Indication: RHEUMATOID ARTHRITIS
     Route: 058
     Dates: start: 201105
  2. ATENOLOL [Concomitant]
     Indication: HYPERTENSION
     Dosage: 25MG DAILY
  3. PRILOSEC [Concomitant]
     Indication: GASTROOESOPHAGEAL REFLUX DISEASE
     Dosage: 20MG DAILY
  4. PERCOCET [Concomitant]
     Indication: PAIN
     Dosage: 5MG DAILY, AS REQUIRED

REACTIONS (3)
  - Hidradenitis [Recovering/Resolving]
  - Injection site haemorrhage [Unknown]
  - Injection site induration [Recovering/Resolving]
